FAERS Safety Report 5124959-2 (Version None)
Quarter: 2006Q4

REPORT INFORMATION
  Report Type: 
  Country: None (occurrence: None)
  Receive Date: 20061011
  Receipt Date: 20060927
  Transmission Date: 20070319
  Serious: Yes (Death)
  Sender: FDA-Public Use
  Company Number: KR-JNJFOC-20061001732

PATIENT
  Sex: Female
  Weight: 40 kg

DRUGS (3)
  1. DURAGESIC-50 [Suspect]
     Route: 062
  2. DURAGESIC-50 [Suspect]
     Route: 062
  3. DURAGESIC-50 [Suspect]
     Indication: CANCER PAIN
     Route: 062

REACTIONS (1)
  - RESPIRATORY FAILURE [None]
